FAERS Safety Report 19113818 (Version 1)
Quarter: 2021Q2

REPORT INFORMATION
  Report Type: Spontaneous
  Country: DZ (occurrence: DZ)
  Receive Date: 20210408
  Receipt Date: 20210408
  Transmission Date: 20210717
  Serious: Yes (Death, Other)
  Sender: FDA-Public Use
  Company Number: DZ-CELGENEUS-DZA-20210401528

PATIENT
  Age: 56 Year
  Sex: Male

DRUGS (1)
  1. VIDAZA [Suspect]
     Active Substance: AZACITIDINE
     Indication: ACUTE MEGAKARYOCYTIC LEUKAEMIA
     Dosage: 100 MILLIGRAM
     Route: 065

REACTIONS (3)
  - Treatment failure [Fatal]
  - Haemorrhagic disorder [Unknown]
  - Pyrexia [Unknown]
